FAERS Safety Report 4956006-7 (Version None)
Quarter: 2006Q1

REPORT INFORMATION
  Report Type: 
  Country: None (occurrence: None)
  Receive Date: 20060328
  Receipt Date: 20060323
  Transmission Date: 20060701
  Serious: Yes (Death)
  Sender: FDA-Public Use
  Company Number: EG-MERCK-0603USA03734

PATIENT
  Age: 27 Year
  Sex: Male

DRUGS (2)
  1. PRIMAXIN [Suspect]
     Route: 042
     Dates: start: 20051015, end: 20051025
  2. ANTIMICROBIAL (UNSPECIFIED) [Concomitant]
     Route: 065

REACTIONS (1)
  - DEATH [None]
